FAERS Safety Report 18959867 (Version 1)
Quarter: 2021Q1

REPORT INFORMATION
  Report Type: Spontaneous
  Country: CZ (occurrence: CZ)
  Receive Date: 20210302
  Receipt Date: 20210302
  Transmission Date: 20210420
  Serious: Yes (Other)
  Sender: FDA-Public Use
  Company Number: CZ-ROCHE-2772972

PATIENT
  Age: 72 Year
  Sex: Male

DRUGS (4)
  1. MILURIT [Concomitant]
     Active Substance: ALLOPURINOL
     Dosage: 1?0?0
  2. TAGREN [Concomitant]
     Active Substance: TICLOPIDINE
     Dosage: 1?0?0
     Dates: end: 20201202
  3. PEGASYS [Suspect]
     Active Substance: PEGINTERFERON ALFA-2A
     Indication: POLYCYTHAEMIA VERA
     Route: 058
     Dates: start: 20201202, end: 20210107
  4. ANOPYRIN [Concomitant]
     Active Substance: ASPIRIN
     Dosage: DOSAGE 1?0?0
     Dates: start: 20201202

REACTIONS (7)
  - Influenza like illness [Recovered/Resolved]
  - Allodynia [Not Recovered/Not Resolved]
  - Off label use [Unknown]
  - Tinnitus [Unknown]
  - Intentional product use issue [Unknown]
  - Polyneuropathy [Not Recovered/Not Resolved]
  - Hypoaesthesia [Not Recovered/Not Resolved]

NARRATIVE: CASE EVENT DATE: 20210101
